FAERS Safety Report 10286194 (Version 1)
Quarter: 2014Q3

REPORT INFORMATION
  Report Type: Spontaneous
  Country: GB (occurrence: GB)
  Receive Date: 20140709
  Receipt Date: 20140709
  Transmission Date: 20150326
  Serious: Yes (Other)
  Sender: FDA-Public Use
  Company Number: GB-MYLANLABS-2014S1015141

PATIENT
  Age: 53 Year
  Sex: Female

DRUGS (1)
  1. OLANZAPINE. [Suspect]
     Active Substance: OLANZAPINE
     Indication: DEPRESSION
     Dosage: 30 MG, QD
     Route: 048
     Dates: start: 2000, end: 2007

REACTIONS (6)
  - Weight increased [Not Recovered/Not Resolved]
  - Autophobia [Unknown]
  - Feeling abnormal [Unknown]
  - Increased appetite [Unknown]
  - Weight loss poor [Unknown]
  - Prescribed overdose [Recovered/Resolved]
